FAERS Safety Report 7288465-1 (Version None)
Quarter: 2011Q1

REPORT INFORMATION
  Report Type: 
  Country: None (occurrence: None)
  Receive Date: 20110211
  Receipt Date: 20110204
  Transmission Date: 20110831
  Serious: Yes (Life-Threatening)
  Sender: FDA-Public Use
  Company Number: B0698035A

PATIENT
  Sex: Male

DRUGS (4)
  1. AUGMENTIN [Suspect]
     Dosage: 2G SINGLE DOSE
     Route: 042
     Dates: start: 20101201, end: 20101201
  2. TRACRIUM [Suspect]
     Route: 042
     Dates: start: 20101201, end: 20101201
  3. REMIFENTANIL [Suspect]
     Route: 042
     Dates: start: 20101201, end: 20101201
  4. DIPRIVAN [Suspect]
     Route: 042
     Dates: start: 20101201, end: 20101201

REACTIONS (4)
  - OXYGEN SATURATION DECREASED [None]
  - ERYTHEMA [None]
  - ANAPHYLACTIC SHOCK [None]
  - HYPOTENSION [None]
